FAERS Safety Report 7930296-0 (Version None)
Quarter: 2011Q4

REPORT INFORMATION
  Report Type: 
  Country: None (occurrence: None)
  Receive Date: 20111121
  Receipt Date: 20111110
  Transmission Date: 20120403
  Serious: Yes (Hospitalization)
  Sender: FDA-Public Use
  Company Number: DE-US-EMD SERONO, INC.-7087810

PATIENT
  Sex: Female
  Weight: 70 kg

DRUGS (7)
  1. LYRICA [Concomitant]
     Indication: PAIN
  2. CYMBALTA [Concomitant]
     Indication: DEPRESSION
  3. MIRTAZAPIN AL [Concomitant]
     Indication: DEPRESSION
  4. URO-TABLINEN [Concomitant]
     Indication: CYSTITIS
  5. SPASMEX [Concomitant]
     Indication: INCONTINENCE
  6. REBIF [Suspect]
     Indication: MULTIPLE SCLEROSIS
     Route: 058
     Dates: start: 20110801
  7. URO-TABLINEN [Concomitant]
     Indication: INFECTION PROPHYLAXIS

REACTIONS (1)
  - MULTIPLE SCLEROSIS RELAPSE [None]
